FAERS Safety Report 8815690 (Version 1)
Quarter: 2012Q4

REPORT INFORMATION
  Report Type: 
  Country: CH (occurrence: CH)
  Receive Date: 20120928
  Receipt Date: 20120928
  Transmission Date: 20130627
  Serious: Yes (Other)
  Sender: FDA-Public Use
  Company Number: CH-PFIZER INC-2012239521

PATIENT
  Age: 59 Year
  Sex: Male

DRUGS (1)
  1. SORTIS [Suspect]
     Dosage: 20 mg, 1x/day
     Dates: start: 2011

REACTIONS (5)
  - Weight decreased [Unknown]
  - Amnesia [Unknown]
  - Myalgia [Unknown]
  - Decreased interest [Unknown]
  - Erectile dysfunction [Unknown]
